FAERS Safety Report 14908281 (Version 3)
Quarter: 2018Q3

REPORT INFORMATION
  Report Type: Spontaneous
  Country: GB (occurrence: GB)
  Receive Date: 20180517
  Receipt Date: 20180717
  Transmission Date: 20181010
  Serious: Yes (Other)
  Sender: FDA-Public Use
  Company Number: GB-PFIZER INC-HQWYE313125SEP07

PATIENT
  Age: 75 Year
  Sex: Male

DRUGS (4)
  1. CARBIMAZOLE [Suspect]
     Active Substance: CARBIMAZOLE
     Dosage: 60 MG, DAILY (INCREASED)
  2. PREDNISOLONE. [Concomitant]
     Active Substance: PREDNISOLONE
  3. AMIODARONE HCL [Suspect]
     Active Substance: AMIODARONE HYDROCHLORIDE
     Indication: VENTRICULAR TACHYCARDIA
     Dosage: 200 MG, 1X/DAY
     Route: 048
  4. CARBIMAZOLE [Suspect]
     Active Substance: CARBIMAZOLE
     Indication: HYPERTHYROIDISM
     Dosage: 40 MG, DAILY

REACTIONS (8)
  - Hypothyroidism [Unknown]
  - Weight decreased [Unknown]
  - Palpitations [Unknown]
  - Treatment failure [Unknown]
  - Thyroiditis [Unknown]
  - Hyperthyroidism [Unknown]
  - Goitre [Unknown]
  - Toxic nodular goitre [Unknown]
